FAERS Safety Report 8883835 (Version 2)
Quarter: 2012Q4

REPORT INFORMATION
  Report Type: Report from Study
  Country: CH (occurrence: ZA)
  Receive Date: 20121102
  Receipt Date: 20121206
  Transmission Date: 20130627
  Serious: Yes (Death)
  Sender: FDA-Public Use
  Company Number: ZA-WATSON-2012-18265

PATIENT
  Age: 82 Year
  Sex: Male

DRUGS (3)
  1. TRELSTAR (WATSON LABORATORIES) [Suspect]
     Indication: PROSTATE CANCER
     Dosage: 22.5 mg once q 6 months
     Route: 058
     Dates: start: 20120820
  2. ADALAT [Concomitant]
     Indication: PRODUCT USED FOR UNKNOWN INDICATION
     Dosage: 30 mg, UNK
     Route: 048
     Dates: start: 20120727, end: 20121011
  3. RIDAQ [Concomitant]
     Indication: PRODUCT USED FOR UNKNOWN INDICATION
     Dosage: 12.5 mg, UNK
     Route: 048
     Dates: start: 20120727, end: 20121011

REACTIONS (1)
  - Prostate cancer [Fatal]
